FAERS Safety Report 13715511 (Version 2)
Quarter: 2017Q3

REPORT INFORMATION
  Report Type: Report from Study
  Country: NL (occurrence: NL)
  Receive Date: 20170704
  Receipt Date: 20170710
  Transmission Date: 20171127
  Serious: Yes (Hospitalization)
  Sender: FDA-Public Use
  Company Number: NL-ROCHE-1958928

PATIENT
  Age: 53 Year
  Sex: Male

DRUGS (5)
  1. EPIRUBICINE [Concomitant]
     Active Substance: EPIRUBICIN
     Indication: GASTRIC CANCER STAGE III
     Route: 065
  2. OXALIPLATIN. [Concomitant]
     Active Substance: OXALIPLATIN
     Indication: GASTRIC CANCER STAGE III
     Route: 065
  3. CAPECITABINE. [Suspect]
     Active Substance: CAPECITABINE
     Indication: GASTRIC CANCER STAGE III
     Route: 065
  4. TS-1 [Concomitant]
     Active Substance: GIMERACIL\OTERACIL\TEGAFUR
     Indication: GASTRIC CANCER STAGE III
     Dosage: DAYS 1-14 EVERY WEEK.
     Route: 048
  5. CISPLATIN. [Concomitant]
     Active Substance: CISPLATIN
     Indication: GASTRIC CANCER STAGE III
     Route: 065

REACTIONS (1)
  - Arteriospasm coronary [Recovered/Resolved]
